FAERS Safety Report 7887618 (Version 8)
Quarter: 2013Q1

REPORT INFORMATION
  Report Type: Report from Study
  Country: DE (occurrence: DE)
  Receive Date: 20110406
  Receipt Date: 20130206
  Transmission Date: 20140127
  Serious: Yes (Hospitalization)
  Sender: FDA-Public Use
  Company Number: DE-ROCHE-767877

PATIENT
  Age: 72 Year
  Sex: Female
  Weight: 66 kg

DRUGS (15)
  1. BEVACIZUMAB [Suspect]
     Indication: COLORECTAL CANCER METASTATIC
     Dosage: DOSAGE FORM: 5 MG/KG.?LAST DOSE PRIOR TO SAE: 10 MARCH 2011.
     Route: 042
  2. BEVACIZUMAB [Suspect]
     Dosage: DOSAGE FORM : INFUSION?LAST DOSE PRIOR TO SAE: 13 APRIL 2011.
     Route: 042
  3. OXALIPLATIN [Suspect]
     Indication: COLORECTAL CANCER METASTATIC
     Dosage: DOSAGE FORM: 85 MG/M2?LAST DOSE PRIOR TO SAE: 10 MARCH 2011.
     Route: 042
  4. OXALIPLATIN [Suspect]
     Dosage: DOSE REDUCED, DOSAGE FORM: INFUSION.?LAST DOSE PRIOR TO SAE: 13 APRIL 2011.
     Route: 042
  5. 5-FU [Suspect]
     Indication: COLORECTAL CANCER METASTATIC
     Dosage: DOSAGE FORM: 2400 MG/M2.?LAST DOSE PRIOR TO SAE: 10 MARCH 2011.
     Route: 042
  6. 5-FU [Suspect]
     Dosage: DOSAGE FORM: INFUSION, LAST DOSE PRIOR TO SAE: 13 APRIL 2011.
     Route: 042
  7. FOLINIC ACID [Suspect]
     Indication: COLORECTAL CANCER METASTATIC
     Dosage: DOSAGE FORM: 400 MG/M2?LAST DOSE PRIOR TO SAE: 10 MARCH 2011.
     Route: 042
  8. FOLINIC ACID [Suspect]
     Dosage: DOSAGE FORM: INFUSION.?LAST DOSE PRIOR TO SAE: 13 APRIL 2011.
     Route: 042
  9. RAMIPRIL [Concomitant]
     Route: 065
  10. RAMIPRIL [Concomitant]
     Route: 065
  11. BISOPROLOL [Concomitant]
     Route: 065
  12. ALDACTONE [Concomitant]
     Route: 065
  13. METAMIZOL [Concomitant]
     Dosage: AS ON DEMAND.?TDD: 30 TIP
     Route: 065
  14. CONCOR [Concomitant]
     Dosage: DOSE FORM: 5 MG
     Route: 065
  15. TOREM [Concomitant]
     Dosage: DOSE FORM : 10 MG
     Route: 065

REACTIONS (3)
  - Dehydration [Recovered/Resolved]
  - Infection [Recovered/Resolved]
  - General physical health deterioration [Recovered/Resolved]
